FAERS Safety Report 20173794 (Version 1)
Quarter: 2021Q4

REPORT INFORMATION
  Report Type: Spontaneous
  Country: IL (occurrence: IL)
  Receive Date: 20211213
  Receipt Date: 20211213
  Transmission Date: 20220303
  Serious: Yes (Other)
  Sender: FDA-Public Use
  Company Number: IL-BIOVITRUM-2021IL7342

PATIENT
  Age: 35 Year
  Sex: Male

DRUGS (1)
  1. KINERET [Suspect]
     Active Substance: ANAKINRA
     Indication: Pericarditis
     Dates: start: 2021

REACTIONS (6)
  - Haematochezia [Unknown]
  - SARS-CoV-2 test positive [Unknown]
  - Abdominal pain [Unknown]
  - Malaise [Unknown]
  - Renal pain [Unknown]
  - Off label use [Unknown]

NARRATIVE: CASE EVENT DATE: 20210101
